FAERS Safety Report 12388043 (Version 1)
Quarter: 2016Q2

REPORT INFORMATION
  Report Type: Spontaneous
  Country: GB (occurrence: GB)
  Receive Date: 20160520
  Receipt Date: 20160520
  Transmission Date: 20160815
  Serious: Yes (Other)
  Sender: FDA-Public Use
  Company Number: GB-ACCORD-040558

PATIENT
  Age: 68 Year
  Sex: Female

DRUGS (1)
  1. CAPECITABINE. [Suspect]
     Active Substance: CAPECITABINE
     Indication: CHEMOTHERAPY
     Route: 048

REACTIONS (13)
  - Diarrhoea [Unknown]
  - Lip dry [Unknown]
  - Dry mouth [Unknown]
  - Pancytopenia [Unknown]
  - Oral herpes [Unknown]
  - Body temperature increased [Unknown]
  - Nausea [Unknown]
  - Oral pain [Unknown]
  - Neutropenia [Unknown]
  - Lower respiratory tract infection [Recovered/Resolved]
  - Asthenia [Unknown]
  - Decreased appetite [Unknown]
  - Dihydropyrimidine dehydrogenase deficiency [Unknown]

NARRATIVE: CASE EVENT DATE: 20160227
